FAERS Safety Report 4665264-8 (Version None)
Quarter: 2005Q2

REPORT INFORMATION
  Report Type: 
  Country: None (occurrence: None)
  Receive Date: 20050518
  Receipt Date: 20050509
  Transmission Date: 20051028
  Serious: Yes (Hospitalization)
  Sender: FDA-Public Use
  Company Number: US-MERCK-0505USA01319

PATIENT
  Age: 61 Year
  Sex: Female
  Weight: 77 kg

DRUGS (24)
  1. VIOXX [Suspect]
     Indication: ARTHRITIS
     Route: 048
     Dates: start: 20011101, end: 20040901
  2. MONOPRIL [Concomitant]
     Indication: HYPERTENSION
     Route: 065
     Dates: start: 20000101
  3. TOPROL-XL [Concomitant]
     Indication: HYPERTENSION
     Route: 048
     Dates: start: 20000101
  4. ASPIRIN [Concomitant]
     Indication: PROPHYLAXIS
     Route: 065
     Dates: start: 20020701
  5. ZOCOR [Concomitant]
     Indication: BLOOD CHOLESTEROL INCREASED
     Route: 048
     Dates: start: 20000101
  6. TYLENOL (CAPLET) [Concomitant]
     Indication: ARTHRITIS
     Route: 065
     Dates: start: 20000101
  7. CELEBREX [Concomitant]
     Route: 048
     Dates: start: 20021201, end: 20030201
  8. PREMPRO (PREMARIN;CYCRIN 14/14) [Concomitant]
     Indication: MENOPAUSE
     Route: 065
     Dates: start: 20000101, end: 20030101
  9. GLUCOSAMINE [Concomitant]
     Indication: ARTHRITIS
     Route: 065
     Dates: start: 20010701
  10. PROZAC [Concomitant]
     Indication: DEPRESSION
     Route: 048
     Dates: start: 20000516
  11. LIBRAX CAPSULES [Concomitant]
     Indication: DEPRESSION
     Route: 065
     Dates: start: 20030301
  12. WELLBUTRIN [Concomitant]
     Indication: DEPRESSION
     Route: 065
     Dates: start: 20020701, end: 20040901
  13. NEXIUM [Concomitant]
     Route: 065
  14. SYNTHROID [Concomitant]
     Route: 065
  15. PREVACID [Concomitant]
     Route: 065
  16. DITROPAN [Concomitant]
     Route: 048
  17. ZYRTEC [Concomitant]
     Route: 048
  18. LEVAQUIN [Concomitant]
     Route: 065
  19. CEFZIL [Concomitant]
     Route: 065
  20. TUSSIONEX (CHLORPHENIRAMINE POLISTIREX (+) HYDROCODONE POLISTIREX) [Concomitant]
     Route: 065
  21. ZITHROMAX [Concomitant]
     Route: 065
  22. ECOTRIN [Concomitant]
     Route: 048
  23. FOLIC ACID [Concomitant]
     Route: 065
  24. PRILOSEC [Concomitant]
     Route: 065

REACTIONS (14)
  - ASTHENIA [None]
  - BLADDER DISORDER [None]
  - CHEST PAIN [None]
  - CORONARY ARTERY ATHEROSCLEROSIS [None]
  - DYSPEPSIA [None]
  - EMOTIONAL DISTRESS [None]
  - GASTRIC ULCER [None]
  - HYPERTENSION [None]
  - LEFT VENTRICULAR FAILURE [None]
  - MITRAL VALVE INCOMPETENCE [None]
  - MYOCARDIAL INFARCTION [None]
  - NORMOCHROMIC NORMOCYTIC ANAEMIA [None]
  - PERICARDIAL EFFUSION [None]
  - TRICUSPID VALVE INCOMPETENCE [None]
